FAERS Safety Report 6803667-3 (Version None)
Quarter: 2010Q2

REPORT INFORMATION
  Report Type: 
  Country: None (occurrence: None)
  Receive Date: 20100628
  Receipt Date: 20100615
  Transmission Date: 20101027
  Serious: Yes (Hospitalization, Other)
  Sender: FDA-Public Use
  Company Number: FR-ELI_LILLY_AND_COMPANY-FR201006003945

PATIENT
  Age: 40 Year
  Sex: Female

DRUGS (25)
  1. ZYPREXA [Suspect]
     Indication: BIPOLAR I DISORDER
     Dosage: 5 MG, DAILY (1/D)
     Route: 048
     Dates: end: 20081125
  2. ZYPREXA [Suspect]
     Dosage: 7.5 MG, DAILY (1/D)
     Route: 048
     Dates: start: 20081126, end: 20090212
  3. ZYPREXA [Suspect]
     Dosage: 20 MG, DAILY (1/D)
     Route: 048
     Dates: start: 20090213, end: 20090301
  4. ZYPREXA [Suspect]
     Dosage: 15 MG, DAILY (1/D)
     Route: 048
     Dates: start: 20090302
  5. AMITRIPTYLINE HCL [Concomitant]
     Indication: BIPOLAR I DISORDER
     Route: 048
  6. RIVOTRIL [Concomitant]
     Indication: BIPOLAR I DISORDER
     Dosage: UNK, UNK
     Route: 048
  7. RIVOTRIL [Concomitant]
     Route: 048
  8. LYSANXIA [Concomitant]
     Indication: BIPOLAR I DISORDER
     Route: 048
  9. TOPIRAMATE [Concomitant]
     Indication: BIPOLAR I DISORDER
     Route: 048
  10. IMOVANE [Concomitant]
     Indication: BIPOLAR I DISORDER
     Route: 048
     Dates: start: 20081118
  11. LARGACTIL [Concomitant]
     Indication: BIPOLAR I DISORDER
     Dosage: 60 D/F, DAILY (1/D)
     Route: 048
     Dates: start: 20081118
  12. SERESTA [Concomitant]
     Indication: BIPOLAR I DISORDER
     Dosage: 20 MG, DAILY (1/D)
     Route: 048
     Dates: start: 20081118
  13. SPASFON LYOC [Concomitant]
     Dosage: 160 MG, DAILY (1/D)
     Route: 048
     Dates: start: 20081118
  14. EFFEXOR [Concomitant]
     Indication: BIPOLAR I DISORDER
     Dosage: 75 MG, DAILY (1/D)
     Route: 048
     Dates: start: 20081120
  15. EFFEXOR [Concomitant]
     Dosage: 75 MG, DAILY (1/D)
     Route: 048
  16. ZOLPIDEM [Concomitant]
     Indication: BIPOLAR I DISORDER
     Dosage: 10 MG, DAILY (1/D)
     Route: 048
     Dates: start: 20081126
  17. THERALENE [Concomitant]
     Indication: BIPOLAR I DISORDER
     Dosage: 100 D/F, DAILY (1/D)
     Route: 048
     Dates: start: 20090115
  18. THERALENE [Concomitant]
     Dosage: 80 D/F, DAILY (1/D)
     Route: 048
  19. SEROPLEX [Concomitant]
     Indication: BIPOLAR I DISORDER
     Dosage: 10 MG, DAILY (1/D)
     Route: 048
     Dates: start: 20090213, end: 20090228
  20. AKINETON /00079501/ [Concomitant]
     Dosage: 8 MG, DAILY (1/D)
     Route: 048
  21. NEULEPTIL [Concomitant]
     Indication: BIPOLAR I DISORDER
     Dosage: 50 D/F, DAILY (1/D)
     Route: 048
     Dates: start: 20090225
  22. NEULEPTIL [Concomitant]
     Dosage: 50 D/F, DAILY (1/D)
     Route: 048
  23. CLAMOXYL /NET/ [Concomitant]
     Dosage: 3 G, DAILY (1/D)
     Route: 048
     Dates: start: 20080225
  24. FLAGYL [Concomitant]
     Indication: FUNGAL INFECTION
     Dosage: 1000 MG, DAILY (1/D)
     Route: 048
     Dates: start: 20081126, end: 20081202
  25. LEXOMIL [Concomitant]
     Dosage: 4 D/F, UNK

REACTIONS (19)
  - ALTERED STATE OF CONSCIOUSNESS [None]
  - ANXIETY [None]
  - DEPRESSED MOOD [None]
  - DRUG EXPOSURE DURING PREGNANCY [None]
  - DRUG TOXICITY [None]
  - ESCHERICHIA INFECTION [None]
  - FALL [None]
  - FATIGUE [None]
  - HELLP SYNDROME [None]
  - HYPERTENSION [None]
  - INTRA-UTERINE DEATH [None]
  - MENTAL DISORDER [None]
  - PROTEINURIA [None]
  - SLEEP DISORDER [None]
  - SOMNOLENCE [None]
  - THROMBOCYTOPENIA [None]
  - VAGINITIS GARDNERELLA [None]
  - VULVOVAGINAL MYCOTIC INFECTION [None]
  - WEIGHT INCREASED [None]
